FAERS Safety Report 10660896 (Version 2)
Quarter: 2014Q4

REPORT INFORMATION
  Report Type: Spontaneous
  Country: GB (occurrence: GB)
  Receive Date: 20141218
  Receipt Date: 20141218
  Transmission Date: 20150529
  Serious: Yes (Other)
  Sender: FDA-Public Use
  Company Number: GB-ROCHE-1485640

PATIENT
  Sex: Female
  Weight: 49 kg

DRUGS (8)
  1. CLEXANE [Concomitant]
     Active Substance: ENOXAPARIN SODIUM
     Indication: ATRIAL FIBRILLATION
     Route: 058
     Dates: start: 20100309
  2. AVASTIN [Suspect]
     Active Substance: BEVACIZUMAB
     Route: 042
  3. XELODA [Suspect]
     Active Substance: CAPECITABINE
     Route: 065
     Dates: start: 201004
  4. BISOPROLOL [Concomitant]
     Active Substance: BISOPROLOL
     Indication: ATRIAL FIBRILLATION
     Dosage: ONGOING SINCE MANY YEARS
     Route: 048
  5. FELODIPINE. [Concomitant]
     Active Substance: FELODIPINE
     Indication: ATRIAL FIBRILLATION
     Dosage: ONGOING SINCE MANY YEARS
     Route: 048
  6. AVASTIN [Suspect]
     Active Substance: BEVACIZUMAB
     Indication: APPENDIX CANCER
     Dosage: DOSE - 250 MG
     Route: 042
     Dates: start: 20101102
  7. XELODA [Suspect]
     Active Substance: CAPECITABINE
     Indication: APPENDIX CANCER
     Dosage: DOSE - 1500 MG
     Route: 048
     Dates: start: 20141102
  8. ASPIRIN. [Concomitant]
     Active Substance: ASPIRIN
     Indication: ATRIAL FIBRILLATION
     Dosage: ONGOING FOR MANY YEARS
     Route: 048

REACTIONS (2)
  - Proteinuria [Not Recovered/Not Resolved]
  - Disease progression [Unknown]
